FAERS Safety Report 6526361-5 (Version None)
Quarter: 2010Q1

REPORT INFORMATION
  Report Type: 
  Country: None (occurrence: None)
  Receive Date: 20100105
  Receipt Date: 20091229
  Transmission Date: 20100710
  Serious: Yes (Hospitalization)
  Sender: FDA-Public Use
  Company Number: US-TEVA-215993USA

PATIENT
  Age: 67 Year
  Sex: Male

DRUGS (3)
  1. CISPLATIN [Suspect]
     Route: 042
  2. DOXORUBICIN HCL [Suspect]
  3. MITOMYCIN [Suspect]

REACTIONS (2)
  - BILIARY FISTULA [None]
  - ISCHAEMIC ULCER [None]
